FAERS Safety Report 5151941-1 (Version None)
Quarter: 2006Q4

REPORT INFORMATION
  Report Type: 
  Country: None (occurrence: None)
  Receive Date: 20061107
  Receipt Date: 20061023
  Transmission Date: 20070319
  Serious: Yes (Death)
  Sender: FDA-Public Use
  Company Number: B0443238A

PATIENT
  Sex: 0

DRUGS (4)
  1. WELLBUTRIN [Suspect]
     Dosage: ORAL
     Route: 048
  2. FENTANYL PATCH  (FENTANYL) [Suspect]
     Dosage: ORAL
     Route: 048
  3. CYCLOBENZAPRINE HCL [Suspect]
     Dosage: ORAL
     Route: 048
  4. ............................... [Suspect]
     Dosage: ORAL
     Route: 048

REACTIONS (2)
  - CARDIO-RESPIRATORY ARREST [None]
  - COMPLETED SUICIDE [None]
